FAERS Safety Report 23353708 (Version 1)
Quarter: 2024Q1

REPORT INFORMATION
  Report Type: Spontaneous
  Country: US (occurrence: US)
  Receive Date: 20240101
  Receipt Date: 20240101
  Transmission Date: 20240410
  Serious: No
  Sender: FDA-Public Use
  Company Number: US-PURDUE PHARMA-USA-2023-0304297

PATIENT
  Sex: Male

DRUGS (3)
  1. BUTRANS [Suspect]
     Active Substance: BUPRENORPHINE
     Indication: Pain management
     Dosage: 20 MCG/HR
     Route: 062
     Dates: start: 20221004
  2. BUTRANS [Suspect]
     Active Substance: BUPRENORPHINE
     Dosage: UNK, WEEKLY
     Route: 062
  3. DEXTROAMPHET SACCHARAT, AMPHET ASPARTATE, DEXTROAMPHET SULFATE AND AMP [Suspect]
     Active Substance: AMPHETAMINE ASPARTATE\AMPHETAMINE ASPARTATE MONOHYDRATE\AMPHETAMINE SULFATE\DEXTROAMPHETAMINE SACCHA
     Indication: Product used for unknown indication
     Dosage: UNKNOWN
     Route: 048

REACTIONS (6)
  - Scab [Unknown]
  - Dermatitis contact [Unknown]
  - Muscle spasms [Recovered/Resolved]
  - Hypertension [Unknown]
  - Drug withdrawal syndrome [Unknown]
  - Drug ineffective [Unknown]
